FAERS Safety Report 11139594 (Version 1)
Quarter: 2015Q2

REPORT INFORMATION
  Report Type: Spontaneous
  Country: JP (occurrence: JP)
  Receive Date: 20150527
  Receipt Date: 20150527
  Transmission Date: 20150821
  Serious: Yes (Hospitalization, Other)
  Sender: FDA-Public Use
  Company Number: JP-OTSUKA-JP-2015-10468

PATIENT

DRUGS (6)
  1. ABILIFY [Suspect]
     Active Substance: ARIPIPRAZOLE
     Indication: COGNITIVE DISORDER
     Dosage: 24 MG/DAY
     Route: 048
     Dates: start: 20140718, end: 20140925
  2. ABILIFY [Suspect]
     Active Substance: ARIPIPRAZOLE
     Indication: SCHIZOPHRENIA
     Dosage: 12 MG/DAY
     Route: 048
     Dates: start: 20140711, end: 20140717
  3. GOODMIN [Concomitant]
     Active Substance: BROTIZOLAM
     Dosage: 0.25 MG, PRN
     Route: 048
     Dates: start: 20150117, end: 20150228
  4. ABILIFY [Suspect]
     Active Substance: ARIPIPRAZOLE
     Indication: SCHIZOPHRENIA
     Dosage: 24 MG/DAY
     Route: 048
     Dates: start: 20140926, end: 20150112
  5. ABILIFY [Suspect]
     Active Substance: ARIPIPRAZOLE
     Indication: COGNITIVE DISORDER
     Dosage: 12 MG/DAY
     Route: 048
     Dates: start: 20150113, end: 20150117
  6. GOODMIN [Concomitant]
     Active Substance: BROTIZOLAM
     Indication: PRODUCT USED FOR UNKNOWN INDICATION
     Dosage: 0.25 MG/DAY
     Route: 048
     Dates: start: 20140711, end: 20150116

REACTIONS (2)
  - Anaemia megaloblastic [None]
  - Anaemia megaloblastic [Unknown]

NARRATIVE: CASE EVENT DATE: 20150117
